FAERS Safety Report 4830986-2 (Version None)
Quarter: 2005Q4

REPORT INFORMATION
  Report Type: 
  Country: None (occurrence: None)
  Receive Date: 20051114
  Receipt Date: 20051102
  Transmission Date: 20060501
  Serious: Yes (Hospitalization)
  Sender: FDA-Public Use
  Company Number: EWC050946075

PATIENT
  Age: 75 Year
  Sex: Male
  Weight: 50 kg

DRUGS (5)
  1. HUMALOG MIX 75/25 [Suspect]
     Indication: DIABETES MELLITUS
     Dosage: 37 U DAY
     Dates: start: 20050916, end: 20050919
  2. HUMULIN 70/30 [Suspect]
     Indication: DIABETES MELLITUS
  3. ACENOCOUMAROL [Concomitant]
  4. DICLOFENAC DIETHYLAMINE [Concomitant]
  5. LASIX [Concomitant]

REACTIONS (6)
  - BLOOD GLUCOSE DECREASED [None]
  - BLOOD GLUCOSE INCREASED [None]
  - DIABETIC COMPLICATION [None]
  - DRUG INEFFECTIVE [None]
  - HYPERTENSION [None]
  - RENAL IMPAIRMENT [None]
